FAERS Safety Report 8077697-0 (Version None)
Quarter: 2012Q1

REPORT INFORMATION
  Report Type: 
  Country: None (occurrence: None)
  Receive Date: 20120127
  Receipt Date: 20120124
  Transmission Date: 20120608
  Serious: Yes (Death, Life-Threatening)
  Sender: FDA-Public Use
  Company Number: FR-PFIZER INC-K201000055

PATIENT
  Age: 61 Year
  Sex: Male

DRUGS (25)
  1. METOPROLOL TARTRATE AND HYDROCHLOROTHIAZIDE [Suspect]
     Dosage: UNK, BID
     Route: 048
     Dates: start: 20091020, end: 20091024
  2. FUROSEMIDE [Suspect]
     Dosage: 20 MG, 3X/DAY
     Route: 042
     Dates: start: 20091028, end: 20091028
  3. CARBAMAZEPINE [Suspect]
     Dosage: 200 MG, 3X/DAY
     Route: 048
     Dates: start: 20091020, end: 20091028
  4. SIMVASTATIN [Suspect]
     Dosage: 20 MG, 1X/DAY
     Route: 048
     Dates: start: 20091025, end: 20091027
  5. LORAZEPAM [Suspect]
     Dosage: 1 MG, 2X/DAY
     Route: 048
     Dates: start: 20091027, end: 20091027
  6. NOREPINEPHRINE BITARTRATE [Suspect]
     Dosage: UNK, ONCE
     Route: 058
     Dates: start: 20091028
  7. ALTACE [Suspect]
     Dosage: 2.5 MG, 1X/DAY
     Route: 048
     Dates: start: 20091021, end: 20091024
  8. EUNERPAN [Suspect]
     Dosage: 25 MG, 1X/DAY
     Route: 042
     Dates: start: 20091020, end: 20091027
  9. ZIENAM [Suspect]
     Dosage: 1 G, 3X/DAY
     Dates: start: 20091028, end: 20091028
  10. NOREPINEPHRINE BITARTRATE [Suspect]
     Dosage: UNK, ONCE
     Route: 058
     Dates: start: 20091025, end: 20090101
  11. FLUNITRAZEPAM [Suspect]
     Dosage: 1 MG, 1X/DAY
     Route: 048
     Dates: start: 20091027, end: 20091028
  12. LORAZEPAM [Suspect]
     Dosage: 1 MG, 4X/DAY
     Route: 048
     Dates: start: 20091020, end: 20091026
  13. BERLINSULIN H [Concomitant]
     Dosage: UNK
     Dates: start: 20091020, end: 20091028
  14. LANSOPRAZOLE [Suspect]
     Indication: SEPSIS
     Dosage: 15 MG, 2X/DAY
     Route: 048
     Dates: start: 20091020, end: 20091027
  15. ARIXTRA [Suspect]
     Dosage: 2.5 MG, 1X/DAY
     Route: 058
     Dates: start: 20091020, end: 20091028
  16. CLONIDINE HYDROCHLORIDE [Suspect]
     Dosage: 0.075 MG, 2X/DAY
     Route: 048
     Dates: start: 20091020, end: 20091024
  17. ACETYLCYSTEINE [Concomitant]
     Dosage: UNK
     Dates: start: 20091020, end: 20091028
  18. ACETYLSALICYLIC ACID SRT [Suspect]
     Dosage: 100 MG, 1X/DAY
     Route: 048
     Dates: start: 20091020, end: 20091028
  19. ZOPICLON [Suspect]
     Dosage: 7.5 MG, 1X/DAY
     Route: 048
     Dates: start: 20091020, end: 20091026
  20. TORSEMIDE [Suspect]
     Dosage: 10 MG, 3X/DAY
     Route: 048
     Dates: start: 20091027, end: 20091027
  21. SULBACTAM [Suspect]
     Dosage: 1 G, 3X/DAY
     Route: 042
     Dates: start: 20091025, end: 20091027
  22. TORSEMIDE [Suspect]
     Dosage: 10 MG, 3X/DAY
     Route: 048
     Dates: start: 20091020, end: 20091020
  23. TORSEMIDE [Suspect]
     Dosage: 10 MG, 2X/DAY
     Route: 048
     Dates: start: 20091021, end: 20091022
  24. TORSEMIDE [Suspect]
     Dosage: 10 MG, 1X/DAY
     Route: 048
     Dates: start: 20091023, end: 20091026
  25. KALINOR-BRAUSETABLETTEN [Concomitant]
     Dosage: UNK
     Dates: start: 20091021, end: 20091027

REACTIONS (7)
  - RHABDOMYOLYSIS [None]
  - SEPTIC SHOCK [None]
  - PYREXIA [None]
  - RENAL FAILURE ACUTE [None]
  - CARDIOVASCULAR INSUFFICIENCY [None]
  - URINE COLOUR ABNORMAL [None]
  - DECUBITUS ULCER [None]
